FAERS Safety Report 8310387-5 (Version None)
Quarter: 2012Q2

REPORT INFORMATION
  Report Type: 
  Country: None (occurrence: None)
  Receive Date: 20120425
  Receipt Date: 20120418
  Transmission Date: 20120825
  Serious: Yes (Other)
  Sender: FDA-Public Use
  Company Number: PHHY2012AR033753

PATIENT
  Sex: Female

DRUGS (1)
  1. RASILEZ [Suspect]
     Indication: BLOOD PRESSURE
     Dosage: 1 DF, DAILY
     Route: 048

REACTIONS (8)
  - INNER EAR DISORDER [None]
  - TENDON RUPTURE [None]
  - PYREXIA [None]
  - VERTIGO [None]
  - DIZZINESS [None]
  - MUSCLE STRAIN [None]
  - PAIN IN EXTREMITY [None]
  - PNEUMONIA [None]
